FAERS Safety Report 25023012 (Version 1)
Quarter: 2025Q1

REPORT INFORMATION
  Report Type: Spontaneous
  Country: FR (occurrence: FR)
  Receive Date: 20250228
  Receipt Date: 20250228
  Transmission Date: 20250408
  Serious: Yes (Hospitalization)
  Sender: MYLAN
  Company Number: None

PATIENT
  Age: 61 Year
  Sex: Male

DRUGS (20)
  1. DILTIAZEM [Suspect]
     Active Substance: DILTIAZEM
     Indication: Arrhythmia
     Dates: start: 20241010, end: 20241019
  2. DILTIAZEM [Suspect]
     Active Substance: DILTIAZEM
     Route: 048
     Dates: start: 20241010, end: 20241019
  3. DILTIAZEM [Suspect]
     Active Substance: DILTIAZEM
     Route: 048
     Dates: start: 20241010, end: 20241019
  4. DILTIAZEM [Suspect]
     Active Substance: DILTIAZEM
     Dates: start: 20241010, end: 20241019
  5. CIPROFLOXACIN [Concomitant]
     Active Substance: CIPROFLOXACIN
     Indication: Urinary tract infection
     Dates: start: 20240927, end: 20240930
  6. CIPROFLOXACIN [Concomitant]
     Active Substance: CIPROFLOXACIN
     Route: 048
     Dates: start: 20240927, end: 20240930
  7. CIPROFLOXACIN [Concomitant]
     Active Substance: CIPROFLOXACIN
     Route: 048
     Dates: start: 20240927, end: 20240930
  8. CIPROFLOXACIN [Concomitant]
     Active Substance: CIPROFLOXACIN
     Dates: start: 20240927, end: 20240930
  9. BACTRIM [Concomitant]
     Active Substance: SULFAMETHOXAZOLE\TRIMETHOPRIM
     Indication: Urinary tract infection
     Dates: start: 20240930, end: 20241007
  10. BACTRIM [Concomitant]
     Active Substance: SULFAMETHOXAZOLE\TRIMETHOPRIM
     Route: 065
     Dates: start: 20240930, end: 20241007
  11. BACTRIM [Concomitant]
     Active Substance: SULFAMETHOXAZOLE\TRIMETHOPRIM
     Route: 065
     Dates: start: 20240930, end: 20241007
  12. BACTRIM [Concomitant]
     Active Substance: SULFAMETHOXAZOLE\TRIMETHOPRIM
     Dates: start: 20240930, end: 20241007
  13. OMNIPAQUE [Concomitant]
     Active Substance: IOHEXOL
     Indication: Computerised tomogram
     Dates: start: 20241003, end: 20241003
  14. OMNIPAQUE [Concomitant]
     Active Substance: IOHEXOL
     Route: 042
     Dates: start: 20241003, end: 20241003
  15. OMNIPAQUE [Concomitant]
     Active Substance: IOHEXOL
     Route: 042
     Dates: start: 20241003, end: 20241003
  16. OMNIPAQUE [Concomitant]
     Active Substance: IOHEXOL
     Dates: start: 20241003, end: 20241003
  17. IBUPROFEN [Concomitant]
     Active Substance: IBUPROFEN
     Indication: Pyrexia
  18. IBUPROFEN [Concomitant]
     Active Substance: IBUPROFEN
     Route: 048
  19. IBUPROFEN [Concomitant]
     Active Substance: IBUPROFEN
     Route: 048
  20. IBUPROFEN [Concomitant]
     Active Substance: IBUPROFEN

REACTIONS (2)
  - Dermatitis exfoliative generalised [Recovered/Resolved]
  - Allergy test negative [Recovered/Resolved]

NARRATIVE: CASE EVENT DATE: 20241014
